FAERS Safety Report 21705654 (Version 1)
Quarter: 2022Q4

REPORT INFORMATION
  Report Type: Report from Study
  Country: US (occurrence: US)
  Receive Date: 20221209
  Receipt Date: 20221209
  Transmission Date: 20230112
  Serious: No
  Sender: FDA-Public Use
  Company Number: US-ABBVIE-4177880

PATIENT
  Sex: Female

DRUGS (3)
  1. HUMIRA [Suspect]
     Active Substance: ADALIMUMAB
     Indication: Rheumatoid arthritis
     Dosage: CITRATE FREE?ONSET DATES OF EVENTS WERE 2022
     Route: 058
     Dates: start: 20220711
  2. Covid-19 Vaccine [Concomitant]
     Indication: COVID-19 immunisation
     Dosage: ONE IN ONCE
     Route: 030
  3. Covid-19 Vaccine [Concomitant]
     Indication: COVID-19 immunisation
     Dosage: ONE IN ONCE?BOOSTER
     Route: 030

REACTIONS (2)
  - Rash erythematous [Recovering/Resolving]
  - Vaginitis viral [Unknown]
